FAERS Safety Report 11841902 (Version 1)
Quarter: 2015Q4

REPORT INFORMATION
  Report Type: Spontaneous
  Country: US (occurrence: US)
  Receive Date: 20151216
  Receipt Date: 20151216
  Transmission Date: 20160305
  Serious: No
  Sender: FDA-Public Use
  Company Number: US-RB-071470-14

PATIENT
  Sex: Male

DRUGS (1)
  1. DELSYM [Suspect]
     Active Substance: DEXTROMETHORPHAN
     Indication: PRODUCT USED FOR UNKNOWN INDICATION
     Dosage: . PATIENT TOOK PRETTY MUCH THE WHOLE BOTTLE OF DELSYM,FREQUENCY UNK
     Route: 065

REACTIONS (3)
  - Overdose [Unknown]
  - Euphoric mood [Unknown]
  - Dysarthria [Unknown]
